FAERS Safety Report 5096968-3 (Version None)
Quarter: 2006Q3

REPORT INFORMATION
  Report Type: 
  Country: None (occurrence: None)
  Receive Date: 20060906
  Receipt Date: 20060829
  Transmission Date: 20061208
  Serious: Yes (Hospitalization)
  Sender: FDA-Public Use
  Company Number: PHNU2006DE02952

PATIENT
  Sex: Male

DRUGS (2)
  1. LAMISIL [Suspect]
     Route: 048
  2. PENICILLIN [Concomitant]

REACTIONS (3)
  - OEDEMA PERIPHERAL [None]
  - PARAESTHESIA [None]
  - THROMBOPHLEBITIS SUPERFICIAL [None]
